FAERS Safety Report 8500994-9 (Version None)
Quarter: 2012Q3

REPORT INFORMATION
  Report Type: 
  Country: None (occurrence: None)
  Receive Date: 20120710
  Receipt Date: 20120705
  Transmission Date: 20120928
  Serious: Yes (Other)
  Sender: FDA-Public Use
  Company Number: US-ABBOTT-11P-163-0860472-00

PATIENT
  Sex: Female
  Weight: 113.05 kg

DRUGS (19)
  1. KLONOPIN [Concomitant]
     Indication: CONVULSION
     Route: 048
  2. VYVANSE [Concomitant]
     Indication: ATTENTION DEFICIT/HYPERACTIVITY DISORDER
     Route: 048
  3. CLONAZEPAM [Concomitant]
     Indication: AFFECTIVE DISORDER
     Route: 048
  4. HUMIRA [Suspect]
     Indication: PSORIATIC ARTHROPATHY
     Dates: start: 20100101
  5. HUMIRA [Suspect]
     Route: 058
     Dates: start: 20100601, end: 20110401
  6. ACTOS [Concomitant]
     Indication: TYPE 2 DIABETES MELLITUS
     Route: 048
  7. LEXAPRO [Concomitant]
     Indication: AFFECTIVE DISORDER
     Dosage: EVERY MORNING
     Route: 048
  8. VITAMIN B-12 [Concomitant]
     Indication: VITAMIN SUPPLEMENTATION
     Route: 048
  9. MULTI-VITAMIN [Concomitant]
     Indication: PRODUCT USED FOR UNKNOWN INDICATION
     Dosage: DAILY
  10. HUMIRA [Suspect]
  11. KEPPRA [Concomitant]
     Indication: CONVULSION
     Route: 048
  12. ANTICOAGULANT [Concomitant]
     Indication: PRODUCT USED FOR UNKNOWN INDICATION
  13. PLAQUENIL [Concomitant]
     Indication: PRODUCT USED FOR UNKNOWN INDICATION
     Route: 048
  14. CALCIUM CARBONATE [Concomitant]
     Indication: PRODUCT USED FOR UNKNOWN INDICATION
  15. METHOTREXATE [Concomitant]
     Indication: PRODUCT USED FOR UNKNOWN INDICATION
  16. CITRACAL + D [Concomitant]
     Indication: PRODUCT USED FOR UNKNOWN INDICATION
     Dosage: DAILY
  17. ABILIFY [Concomitant]
     Indication: AFFECTIVE DISORDER
     Route: 048
  18. XANAX [Concomitant]
     Indication: AFFECTIVE DISORDER
     Dosage: AS NEEDED
     Route: 048
  19. SYMBICORT [Concomitant]
     Indication: LANGERHANS' CELL HISTIOCYTOSIS

REACTIONS (12)
  - SKIN IRRITATION [None]
  - ILL-DEFINED DISORDER [None]
  - FUNGAL INFECTION [None]
  - ASTHMA [None]
  - OESOPHAGEAL DILATATION [None]
  - VOMITING [None]
  - GASTRIC BYPASS [None]
  - ARTHRALGIA [None]
  - OSTEOARTHRITIS [None]
  - WEIGHT LOSS POOR [None]
  - SWELLING [None]
  - PSORIATIC ARTHROPATHY [None]
